FAERS Safety Report 4789004-7 (Version None)
Quarter: 2005Q4

REPORT INFORMATION
  Report Type: 
  Country: None (occurrence: None)
  Receive Date: 20051004
  Receipt Date: 20050926
  Transmission Date: 20060501
  Serious: Yes (Other)
  Sender: FDA-Public Use
  Company Number: 2005133790

PATIENT
  Sex: Female
  Weight: 115.2136 kg

DRUGS (11)
  1. NEURONTIN [Suspect]
     Indication: FIBROMYALGIA
     Dosage: ORAL
     Route: 048
  2. BEXTRA [Suspect]
     Indication: NEURALGIA
     Dosage: (1 IN 1 D), ORAL
     Route: 048
     Dates: start: 20050101, end: 20050101
  3. METFORMIN HCL [Concomitant]
  4. AVAPRO [Concomitant]
  5. HYDROCHLOROTHIAZIDE WITH TRIAMTERENE (HYDROCHLOROTHIAZIDE, TRIAMTERENE [Concomitant]
  6. MIRTAZAPINE [Concomitant]
  7. EFFEXOR XR [Concomitant]
  8. CLONAZEPAM [Concomitant]
  9. WELLBUTRIN XL [Concomitant]
  10. ZONEGRAN [Concomitant]
  11. PREVACID [Concomitant]

REACTIONS (9)
  - ABNORMAL DREAMS [None]
  - ANXIETY [None]
  - DIABETIC NEUROPATHY [None]
  - DYSKINESIA [None]
  - FACIAL PALSY [None]
  - HEADACHE [None]
  - IMPAIRED WORK ABILITY [None]
  - JOINT INJURY [None]
  - NERVE INJURY [None]
